FAERS Safety Report 10599885 (Version 1)
Quarter: 2014Q4

REPORT INFORMATION
  Report Type: Spontaneous
  Country: DE (occurrence: DE)
  Receive Date: 20141121
  Receipt Date: 20141121
  Transmission Date: 20150529
  Serious: Yes (Other)
  Sender: FDA-Public Use
  Company Number: DE-ABBVIE-14P-062-1310915-00

PATIENT
  Age: 26 Year
  Sex: Female

DRUGS (6)
  1. TRUXAL [Suspect]
     Active Substance: CHLORPROTHIXENE
     Indication: DEPRESSION
     Route: 048
     Dates: start: 20140430, end: 20140609
  2. ATOSIL [Suspect]
     Active Substance: PROMETHAZINE HYDROCHLORIDE
     Indication: DEPRESSION
     Dosage: 3 TIMES A DAY
     Route: 048
     Dates: start: 20140611, end: 20140825
  3. ERGENYL CHRONO [Suspect]
     Active Substance: VALPROIC ACID
     Indication: BORDERLINE PERSONALITY DISORDER
     Dosage: TWICE DAILY
     Route: 048
     Dates: start: 20140430, end: 20140609
  4. CITALOPRAM [Suspect]
     Active Substance: CITALOPRAM HYDROBROMIDE
     Indication: DEPRESSION
     Route: 048
     Dates: start: 20140709, end: 20140825
  5. DOXEPIN [Suspect]
     Active Substance: DOXEPIN
     Indication: DEPRESSION
     Route: 048
     Dates: start: 20140430, end: 20140609
  6. CITALOPRAM [Suspect]
     Active Substance: CITALOPRAM HYDROBROMIDE
     Indication: MENTAL DISORDER

REACTIONS (2)
  - Mental disorder [Recovered/Resolved]
  - Induced abortion failed [Recovered/Resolved]
